FAERS Safety Report 25974421 (Version 1)
Quarter: 2025Q4

REPORT INFORMATION
  Report Type: Spontaneous
  Country: US (occurrence: US)
  Receive Date: 20251029
  Receipt Date: 20251029
  Transmission Date: 20260117
  Serious: Yes (Death)
  Sender: ROCHE
  Company Number: US-ROCHE-10000420923

PATIENT
  Sex: Female

DRUGS (3)
  1. ACTEMRA [Suspect]
     Active Substance: TOCILIZUMAB
     Indication: Rheumatoid arthritis
     Dosage: 162 MG/0.9M
     Route: 058
     Dates: start: 202304
  2. ACTEMRA [Suspect]
     Active Substance: TOCILIZUMAB
     Indication: Systemic lupus erythematosus
  3. EVENITY SYR [Concomitant]
     Dosage: 105MG/1.17 ML

REACTIONS (1)
  - Death [Fatal]
